FAERS Safety Report 8342712-3 (Version None)
Quarter: 2012Q2

REPORT INFORMATION
  Report Type: 
  Country: None (occurrence: None)
  Receive Date: 20120503
  Receipt Date: 20101112
  Transmission Date: 20120825
  Serious: Yes (Hospitalization, Other)
  Sender: FDA-Public Use
  Company Number: PL-021432

PATIENT
  Age: 73 Year
  Sex: Male

DRUGS (9)
  1. (ELECTROLYTES) [Concomitant]
  2. GALANTAMINE HYDROBROMIDE [Concomitant]
  3. SODIUM CHLORIDE [Concomitant]
  4. CYANOCOBALAMIN [Concomitant]
  5. (OTHERS) [Concomitant]
  6. (OFATUMUMAB) [Suspect]
     Indication: CHRONIC LYMPHOCYTIC LEUKAEMIA
     Dosage: INJECTION INTRAVENOUS (NOT OTHERWISE SPECIFIED)
     Route: 042
     Dates: start: 20100512
  7. (CHLORAMBUCIL) [Suspect]
     Indication: CHRONIC LYMPHOCYTIC LEUKAEMIA
     Dosage: 10 MG/M2 DAYS 1-7 EVERY 28 DAYS ORAL
     Route: 048
     Dates: start: 20100512
  8. MAGNESIUM SULFATE [Concomitant]
  9. (THIAMINE (VIT B1)) [Concomitant]

REACTIONS (7)
  - FACIAL PARESIS [None]
  - DEAFNESS UNILATERAL [None]
  - HERPES ZOSTER OPHTHALMIC [None]
  - BALANCE DISORDER [None]
  - PYREXIA [None]
  - VERTIGO LABYRINTHINE [None]
  - HERPES SIMPLEX OTITIS EXTERNA [None]
